FAERS Safety Report 8729913 (Version 3)
Quarter: 2013Q3

REPORT INFORMATION
  Report Type: Spontaneous
  Country: US (occurrence: US)
  Receive Date: 20120817
  Receipt Date: 20130705
  Transmission Date: 20140515
  Serious: Yes (Congenital Anomaly)
  Sender: FDA-Public Use
  Company Number: US-GLAXOSMITHKLINE-A0989946A

PATIENT
  Age: 0 Day
  Sex: Male
  Weight: 2.3 kg

DRUGS (1)
  1. PAXIL CR [Suspect]
     Indication: DEPRESSION
     Dosage: 20MG PER DAY
     Route: 064

REACTIONS (6)
  - Ventricular septal defect [Unknown]
  - Cardiac murmur [Unknown]
  - Torticollis [Unknown]
  - Congenital scoliosis [Unknown]
  - Patent ductus arteriosus [Unknown]
  - Foetal exposure during pregnancy [Unknown]
